FAERS Safety Report 6926168-0 (Version None)
Quarter: 2010Q3

REPORT INFORMATION
  Report Type: 
  Country: None (occurrence: None)
  Receive Date: 20100816
  Receipt Date: 20100804
  Transmission Date: 20110219
  Serious: Yes (Other)
  Sender: FDA-Public Use
  Company Number: US-PFIZER INC-2010098743

PATIENT
  Sex: Male
  Weight: 85.261 kg

DRUGS (2)
  1. TOVIAZ [Suspect]
     Indication: INCONTINENCE
     Dosage: 8 MG, UNK
     Route: 048
     Dates: start: 20100730, end: 20100730
  2. CIPROFLOXACIN [Concomitant]
     Dosage: UNK

REACTIONS (7)
  - ABDOMINAL PAIN [None]
  - DRY MOUTH [None]
  - MALAISE [None]
  - OROPHARYNGEAL PAIN [None]
  - PRURITUS [None]
  - RASH [None]
  - TACHYCARDIA [None]
